FAERS Safety Report 7537138-6 (Version None)
Quarter: 2011Q2

REPORT INFORMATION
  Report Type: 
  Country: None (occurrence: None)
  Receive Date: 20110609
  Receipt Date: 20110606
  Transmission Date: 20111010
  Serious: Yes (Death, Hospitalization, Other)
  Sender: FDA-Public Use
  Company Number: PHHY2011BR49100

PATIENT
  Age: 72 Year
  Sex: Male

DRUGS (3)
  1. ASPIRIN [Concomitant]
     Indication: CARDIOVASCULAR DISORDER
     Dosage: 1 DF PER DAY
     Route: 048
  2. DIOVAN [Suspect]
     Indication: CARDIAC DISORDER
     Dosage: 0.5 DF A DAY
     Route: 048
  3. VYTORIN [Concomitant]
     Indication: CARDIAC DISORDER
     Dosage: 1 DF PER DAY
     Route: 048

REACTIONS (9)
  - RESPIRATORY FAILURE [None]
  - LUNG DISORDER [None]
  - WRONG TECHNIQUE IN DRUG USAGE PROCESS [None]
  - ARTERIAL THROMBOSIS LIMB [None]
  - BONE MARROW DISORDER [None]
  - PAIN IN EXTREMITY [None]
  - MULTI-ORGAN FAILURE [None]
  - METASTASES TO BONE [None]
  - PROSTATE CANCER [None]
